FAERS Safety Report 13275403 (Version 1)
Quarter: 2017Q1

REPORT INFORMATION
  Report Type: Spontaneous
  Country: TR (occurrence: TR)
  Receive Date: 20170228
  Receipt Date: 20170228
  Transmission Date: 20170428
  Serious: Yes (Other)
  Sender: FDA-Public Use
  Company Number: TR-BAXTER-2017BAX008096

PATIENT
  Age: 37 Year
  Sex: Female

DRUGS (7)
  1. IZOTONIK SODYUM KLOR?R CAM [Suspect]
     Active Substance: SODIUM CHLORIDE
     Route: 042
  2. PHENIRAMINE [Concomitant]
     Active Substance: PHENIRAMINE
     Indication: PRODUCT USED FOR UNKNOWN INDICATION
     Route: 065
  3. METOCLOPRAMIDE. [Concomitant]
     Active Substance: METOCLOPRAMIDE
     Indication: PRODUCT USED FOR UNKNOWN INDICATION
     Route: 065
  4. ATROPINE. [Concomitant]
     Active Substance: ATROPINE
     Indication: PRODUCT USED FOR UNKNOWN INDICATION
     Route: 065
  5. IZOTONIK SODYUM KLOR?R CAM [Suspect]
     Active Substance: SODIUM CHLORIDE
     Dosage: 2 MONTHS AFTER DISCHARGE
     Route: 042
  6. DEXTROSE 5% [Concomitant]
     Active Substance: DEXTROSE
     Indication: PRODUCT USED FOR UNKNOWN INDICATION
     Route: 042
  7. IZOTONIK SODYUM KLOR?R CAM [Suspect]
     Active Substance: SODIUM CHLORIDE
     Indication: PRODUCT USED FOR UNKNOWN INDICATION
     Route: 042

REACTIONS (1)
  - Anaphylactic reaction [Recovered/Resolved]
